FAERS Safety Report 4939856-2 (Version None)
Quarter: 2006Q1

REPORT INFORMATION
  Report Type: 
  Country: None (occurrence: None)
  Receive Date: 20060310
  Receipt Date: 20050302
  Transmission Date: 20060701
  Serious: Yes (Hospitalization)
  Sender: FDA-Public Use
  Company Number: DE-MERCK-0503DEU00023

PATIENT
  Age: 70 Year
  Sex: Male
  Weight: 93 kg

DRUGS (9)
  1. ZETIA [Suspect]
     Indication: HYPERLIPIDAEMIA
     Route: 048
     Dates: start: 20040101, end: 20041001
  2. CYPROTERONE ACETATE [Suspect]
     Indication: PROSTATE CANCER
     Route: 048
     Dates: start: 20040101, end: 20041001
  3. CYPROTERONE ACETATE [Suspect]
     Route: 030
     Dates: start: 20040101, end: 20041001
  4. CYPROTERONE ACETATE [Suspect]
     Indication: PROSTATIC SPECIFIC ANTIGEN INCREASED
     Route: 048
     Dates: start: 20040101, end: 20041001
  5. CYPROTERONE ACETATE [Suspect]
     Route: 030
     Dates: start: 20040101, end: 20041001
  6. ATORVASTATIN CALCIUM [Suspect]
     Indication: HYPERLIPIDAEMIA
     Route: 048
     Dates: start: 20030101, end: 20041001
  7. PHENPROCOUMON [Concomitant]
     Indication: ATRIAL FIBRILLATION
     Route: 065
  8. [THERAPY UNSPECIFIED] [Concomitant]
     Route: 065
  9. LEVOTHYROXINE SODIUM [Concomitant]
     Route: 065

REACTIONS (3)
  - DRUG INTERACTION [None]
  - RENAL FAILURE [None]
  - RHABDOMYOLYSIS [None]
